FAERS Safety Report 6035921-X (Version None)
Quarter: 2009Q1

REPORT INFORMATION
  Report Type: 
  Country: None (occurrence: None)
  Receive Date: 20090113
  Receipt Date: 20090109
  Transmission Date: 20090719
  Serious: Yes (Death)
  Sender: FDA-Public Use
  Company Number: A0763090A

PATIENT
  Age: 72 Year
  Sex: Female

DRUGS (5)
  1. SERETIDE [Suspect]
     Dates: start: 20080101, end: 20081215
  2. PRELONE [Concomitant]
     Dosage: 2.5ML TWICE PER DAY
     Dates: start: 20080101, end: 20081215
  3. DIGOXIN [Concomitant]
     Dates: start: 19890101, end: 20081215
  4. CAPTOPRIL [Concomitant]
     Dates: start: 19890101, end: 20081215
  5. ANCORON [Concomitant]
     Dates: start: 20080701, end: 20081215

REACTIONS (1)
  - DEATH [None]
